FAERS Safety Report 10176408 (Version 1)
Quarter: 2014Q2

REPORT INFORMATION
  Report Type: Spontaneous
  Country: US (occurrence: US)
  Receive Date: 20140516
  Receipt Date: 20140516
  Transmission Date: 20141212
  Serious: Yes (Other)
  Sender: FDA-Public Use
  Company Number: US-ASTRAZENECA-2014SE31983

PATIENT
  Sex: Male

DRUGS (4)
  1. SEROQUEL XR [Suspect]
     Indication: MAJOR DEPRESSION
     Dosage: UNKNOWN
     Route: 048
     Dates: end: 2014
  2. PRISTIQUE [Concomitant]
  3. KLONIPIN [Concomitant]
  4. LITHIUM ER [Concomitant]

REACTIONS (1)
  - Blood triglycerides increased [Recovering/Resolving]
